FAERS Safety Report 4502018-7 (Version None)
Quarter: 2004Q4

REPORT INFORMATION
  Report Type: 
  Country: None (occurrence: None)
  Receive Date: 20041109
  Receipt Date: 20041025
  Transmission Date: 20050328
  Serious: Yes (Hospitalization)
  Sender: FDA-Public Use
  Company Number: 2004AL001121

PATIENT
  Age: 63 Year
  Sex: Female

DRUGS (24)
  1. SERAX (OXAZEPAM) TABLETS, 15 MG (ALHARMA) [Suspect]
     Dosage: 50 MG; QD; PO
     Route: 048
     Dates: start: 20030120, end: 20030120
  2. SERAX (OXAZEPAM) TABLETS, 15 MG (ALHARMA) [Suspect]
     Dosage: 50 MG; QD; PO
     Route: 048
     Dates: start: 20030220, end: 20030220
  3. SERAX (OXAZEPAM) TABLETS, 15 MG (ALHARMA) [Suspect]
     Dosage: 50 MG; QD; PO
     Route: 048
     Dates: start: 20030303, end: 20030303
  4. SERAX (OXAZEPAM) TABLETS, 15 MG (ALHARMA) [Suspect]
     Dosage: 50 MG; QD; PO
     Route: 048
     Dates: start: 20030331, end: 20030331
  5. OMEPRAZOLE [Suspect]
     Dosage: 20 MG; QD; PO
     Route: 048
     Dates: start: 20030120, end: 20030120
  6. OMEPRAZOLE [Suspect]
     Dosage: 20 MG; QD; PO
     Route: 048
     Dates: start: 20030220, end: 20030220
  7. OMEPRAZOLE [Suspect]
     Dosage: 20 MG; QD; PO
     Route: 048
     Dates: start: 20030303, end: 20030303
  8. OMEPRAZOLE [Suspect]
     Dosage: 20 MG; QD; PO
     Route: 048
     Dates: start: 20030331, end: 20030331
  9. SOLU-MEDROL [Suspect]
     Dosage: 60 MG; QD; IV
     Route: 042
     Dates: start: 20030120, end: 20030120
  10. SOLU-MEDROL [Suspect]
     Dosage: 60 MG; QD; IV
     Route: 042
     Dates: start: 20030220, end: 20030220
  11. SOLU-MEDROL [Suspect]
     Dosage: 60 MG; QD; IV
     Route: 042
     Dates: start: 20030303, end: 20030303
  12. SOLU-MEDROL [Suspect]
     Dosage: 60 MG; QD; IV
     Route: 042
     Dates: start: 20030331, end: 20030331
  13. ZOLPIDEM [Suspect]
     Dosage: QD;PO
     Route: 048
     Dates: start: 20030120, end: 20030120
  14. ZOLPIDEM [Suspect]
     Dosage: QD;PO
     Route: 048
     Dates: start: 20030220, end: 20030220
  15. ZOLPIDEM [Suspect]
     Dosage: QD;PO
     Route: 048
     Dates: start: 20030303, end: 20030303
  16. ZOLPIDEM [Suspect]
     Dosage: QD;PO
     Route: 048
     Dates: start: 20030331, end: 20030331
  17. TAXOTERE [Suspect]
     Dosage: 132 MG; QD
     Dates: start: 20030120, end: 20030120
  18. TAXOTERE [Suspect]
     Dosage: 132 MG; QD
     Dates: start: 20030220, end: 20030220
  19. TAXOTERE [Suspect]
     Dosage: 132 MG; QD
     Dates: start: 20030303, end: 20030303
  20. TAXOTERE [Suspect]
     Dosage: 132 MG; QD
     Dates: start: 20030331, end: 20030331
  21. ZOPHREN [Suspect]
     Dosage: QD IV
     Route: 042
     Dates: start: 20030120, end: 20030120
  22. ZOPHREN [Suspect]
     Dosage: QD IV
     Route: 042
     Dates: start: 20030220, end: 20030220
  23. ZOPHREN [Suspect]
     Dosage: QD IV
     Route: 042
     Dates: start: 20030303, end: 20030303
  24. ZOPHREN [Suspect]
     Dosage: QD IV
     Route: 042
     Dates: start: 20030331, end: 20030331

REACTIONS (1)
  - SUPRAVENTRICULAR TACHYCARDIA [None]
